FAERS Safety Report 25060530 (Version 1)
Quarter: 2025Q1

REPORT INFORMATION
  Report Type: Spontaneous
  Country: JP (occurrence: JP)
  Receive Date: 20250310
  Receipt Date: 20250310
  Transmission Date: 20250409
  Serious: Yes (Hospitalization)
  Sender: AMGEN
  Company Number: JP-AMGEN-JPNSP2025043792

PATIENT
  Age: 76 Year
  Sex: Male

DRUGS (7)
  1. BLINATUMOMAB [Suspect]
     Active Substance: BLINATUMOMAB
     Indication: B precursor type acute leukaemia
     Route: 065
  2. DASATINIB [Concomitant]
     Active Substance: DASATINIB
     Indication: B precursor type acute leukaemia
  3. PONATINIB [Concomitant]
     Active Substance: PONATINIB
     Indication: B precursor type acute leukaemia
  4. INOTUZUMAB OZOGAMICIN [Concomitant]
     Active Substance: INOTUZUMAB OZOGAMICIN
     Indication: B precursor type acute leukaemia
  5. METHOTREXATE [Concomitant]
     Active Substance: METHOTREXATE
     Indication: B precursor type acute leukaemia
     Route: 029
  6. METHOTREXATE [Concomitant]
     Active Substance: METHOTREXATE
     Indication: Leukaemic infiltration extramedullary
  7. METHOTREXATE [Concomitant]
     Active Substance: METHOTREXATE
     Dosage: 400 MICROGRAM/0.1 ML/DOSE, QWK

REACTIONS (1)
  - Leukaemic infiltration extramedullary [Recovered/Resolved]
